FAERS Safety Report 12283401 (Version 1)
Quarter: 2016Q2

REPORT INFORMATION
  Report Type: Spontaneous
  Country: GB (occurrence: GB)
  Receive Date: 20160419
  Receipt Date: 20160419
  Transmission Date: 20160815
  Serious: Yes (Death)
  Sender: FDA-Public Use
  Company Number: GB-DEPOMED, INC.-GB-2016DEP009261

PATIENT
  Sex: Female

DRUGS (1)
  1. FENTANYL CITRATE. [Suspect]
     Active Substance: FENTANYL CITRATE
     Indication: PRODUCT USED FOR UNKNOWN INDICATION
     Dosage: 100 MCG/1 BOTTLE, UNK
     Route: 065
     Dates: start: 20160201

REACTIONS (1)
  - Death [Fatal]

NARRATIVE: CASE EVENT DATE: 20160204
